FAERS Safety Report 5256273-9 (Version None)
Quarter: 2007Q1

REPORT INFORMATION
  Report Type: 
  Country: None (occurrence: None)
  Receive Date: 20070302
  Receipt Date: 20070302
  Transmission Date: 20070707
  Serious: Yes (Hospitalization)
  Sender: FDA-Public Use
  Company Number: None

PATIENT
  Sex: Female
  Weight: 78 kg

DRUGS (2)
  1. CARBOPLATIN [Suspect]
     Dosage: 507 MG
  2. ETOPOSIDE [Suspect]
     Dosage: 1104 MG

REACTIONS (3)
  - DYSPHAGIA [None]
  - FEBRILE NEUTROPENIA [None]
  - OESOPHAGITIS [None]
